FAERS Safety Report 26164122 (Version 1)
Quarter: 2025Q4

REPORT INFORMATION
  Report Type: Spontaneous
  Country: US (occurrence: None)
  Receive Date: 20251216
  Receipt Date: 20251216
  Transmission Date: 20260117
  Serious: Yes (Other)
  Sender: FDA-CTU
  Company Number: None

PATIENT
  Age: 91 Year
  Sex: Male
  Weight: 70.76 kg

DRUGS (1)
  1. JAYPIRCA [Suspect]
     Active Substance: PIRTOBRUTINIB
     Indication: Chronic lymphocytic leukaemia
     Dosage: FREQUENCY : TWICE A DAY;
     Route: 048
     Dates: start: 20250221

REACTIONS (3)
  - Abdominal pain [None]
  - Pain [None]
  - Vomiting [None]

NARRATIVE: CASE EVENT DATE: 20251215
